FAERS Safety Report 5181066-0 (Version None)
Quarter: 2006Q4

REPORT INFORMATION
  Report Type: 
  Country: None (occurrence: None)
  Receive Date: 20061218
  Receipt Date: 20061218
  Transmission Date: 20070319
  Serious: Yes (Hospitalization)
  Sender: FDA-Public Use
  Company Number: None

PATIENT
  Sex: Male
  Weight: 68.0396 kg

DRUGS (2)
  1. TOPOTECAN 3 MG/M2 [Suspect]
     Indication: SMALL CELL LUNG CANCER STAGE UNSPECIFIED
     Dosage: 3MG/M2 D 1, 8, 15 Q28  IV
     Route: 042
     Dates: start: 20061214
  2. PS-341  1.3MG/M2 [Suspect]
     Indication: SMALL CELL LUNG CANCER STAGE UNSPECIFIED
     Dosage: 1.6MG/M2  D 1, 8, 15 Q28 IV
     Route: 042
     Dates: start: 20061214

REACTIONS (7)
  - DYSPNOEA [None]
  - HEART RATE INCREASED [None]
  - LYMPHADENOPATHY [None]
  - MALAISE [None]
  - PLEURAL EFFUSION [None]
  - PULMONARY MASS [None]
  - TACHYPNOEA [None]
